FAERS Safety Report 8940953 (Version 2)
Quarter: 2015Q2

REPORT INFORMATION
  Report Type: Report from Study
  Country: FR (occurrence: FR)
  Receive Date: 20121203
  Receipt Date: 20150427
  Transmission Date: 20150821
  Serious: Yes (Death, Other)
  Sender: FDA-Public Use
  Company Number: FR-ROCHE-1163263

PATIENT
  Age: 82 Year
  Sex: Male

DRUGS (12)
  1. CORTANCYL [Concomitant]
     Active Substance: PREDNISONE
     Dosage: DAILY
     Route: 065
  2. AMAREL [Concomitant]
     Active Substance: GLIMEPIRIDE
  3. XATRAL [Concomitant]
     Active Substance: ALFUZOSIN
  4. CORTANCYL [Concomitant]
     Active Substance: PREDNISONE
     Dosage: DAILY
     Route: 065
  5. RITUXIMAB [Suspect]
     Active Substance: RITUXIMAB
     Indication: RHEUMATOID ARTHRITIS
     Dosage: 08/JAN/2008 (D15)
     Route: 042
     Dates: start: 20081205
  6. COVERSYL [Concomitant]
     Active Substance: PERINDOPRIL
  7. METHOTREXATE [Concomitant]
     Active Substance: METHOTREXATE
     Dosage: WEEKLY
     Route: 065
  8. ACTONEL [Concomitant]
     Active Substance: RISEDRONATE SODIUM
  9. RITUXIMAB [Suspect]
     Active Substance: RITUXIMAB
     Dosage: 24/AUG/2009 (D15)
     Route: 042
     Dates: start: 20090810
  10. METHOTREXATE [Concomitant]
     Active Substance: METHOTREXATE
     Dosage: WEEKLY
     Route: 065
  11. ABATACEPT [Concomitant]
     Active Substance: ABATACEPT
  12. ASPEGIC [Concomitant]
     Active Substance: ASPIRIN DL-LYSINE

REACTIONS (4)
  - Respiratory failure [Fatal]
  - Dermatitis bullous [Recovered/Resolved]
  - Squamous cell carcinoma of skin [Recovered/Resolved]
  - Bronchitis [Recovered/Resolved]

NARRATIVE: CASE EVENT DATE: 20081217
